FAERS Safety Report 23259248 (Version 1)
Quarter: 2023Q4

REPORT INFORMATION
  Report Type: Spontaneous
  Country: KR (occurrence: KR)
  Receive Date: 20231204
  Receipt Date: 20231204
  Transmission Date: 20240109
  Serious: Yes (Hospitalization)
  Sender: FDA-Public Use
  Company Number: KR-AMNEAL PHARMACEUTICALS-2023-AMRX-04178

PATIENT
  Age: 74 Year
  Sex: Male

DRUGS (9)
  1. QUETIAPINE FUMARATE [Suspect]
     Active Substance: QUETIAPINE FUMARATE
     Indication: Vascular dementia
     Dosage: 50 MILLIGRAM, QD
     Route: 065
  2. QUETIAPINE FUMARATE [Suspect]
     Active Substance: QUETIAPINE FUMARATE
     Dosage: 300 MILLIGRAM, QD (INCREASED GRADUALLY FROM 50 MG TO 300 MG A DAY OVER THE PRECEDING 2 MONTHS)
     Route: 065
  3. ROSUVASTATIN [Concomitant]
     Active Substance: ROSUVASTATIN
     Indication: Vascular dementia
     Dosage: UNK
     Route: 065
  4. DONEPEZIL [Concomitant]
     Active Substance: DONEPEZIL
     Indication: Vascular dementia
     Dosage: UNK
     Route: 065
  5. CLOPIDOGREL [Concomitant]
     Active Substance: CLOPIDOGREL BISULFATE
     Indication: Vascular dementia
     Dosage: UNK
     Route: 065
  6. CILOSTAZOL [Concomitant]
     Active Substance: CILOSTAZOL
     Indication: Vascular dementia
     Dosage: UNK
     Route: 065
  7. CANDESARTAN [Concomitant]
     Active Substance: CANDESARTAN
     Indication: Cardiac failure
     Dosage: UNK
     Route: 065
  8. FUROSEMIDE [Concomitant]
     Active Substance: FUROSEMIDE
     Indication: Cardiac failure
     Dosage: UNK
     Route: 065
  9. CARVEDILOL [Concomitant]
     Active Substance: CARVEDILOL
     Indication: Cardiac failure
     Dosage: UNK
     Route: 065

REACTIONS (2)
  - Hypoglycaemia [Recovered/Resolved]
  - Enteritis [Recovering/Resolving]
